FAERS Safety Report 17859782 (Version 1)
Quarter: 2020Q2

REPORT INFORMATION
  Report Type: Spontaneous
  Country: US (occurrence: US)
  Receive Date: 20200604
  Receipt Date: 20200604
  Transmission Date: 20200714
  Serious: Yes (Hospitalization, Other)
  Sender: FDA-Public Use
  Company Number: None

PATIENT
  Age: 58 Year
  Sex: Female
  Weight: 87.75 kg

DRUGS (11)
  1. BUSPIRONE [Concomitant]
     Active Substance: BUSPIRONE HYDROCHLORIDE
  2. FISH OIL [Concomitant]
     Active Substance: FISH OIL
  3. CARVEDILOL. [Concomitant]
     Active Substance: CARVEDILOL
  4. AJOVY [Suspect]
     Active Substance: FREMANEZUMAB-VFRM
     Indication: MIGRAINE
     Dosage: ?          QUANTITY:3 INJECTION(S);OTHER FREQUENCY:EVERY THREE MONTHS;?
     Route: 030
     Dates: start: 20190815, end: 20200519
  5. ORACEA [Concomitant]
     Active Substance: DOXYCYCLINE
  6. BABY ASPIRIN [Concomitant]
     Active Substance: ASPIRIN
  7. MULTI-VITAMIN [Concomitant]
     Active Substance: .ALPHA.-TOCOPHEROL ACETATE, DL-\ASCORBIC ACID\CYANOCOBALAMIN\FLUORIDE ION\FOLIC ACID\NIACIN\PYRIDOXINE\RIBOFLAVIN\THIAMINE\VITAMIN A\VITAMIN D
  8. LISINOPRIL. [Concomitant]
     Active Substance: LISINOPRIL
  9. AMITRIPTYLENE [Concomitant]
     Active Substance: AMITRIPTYLINE
  10. BUPROPION. [Concomitant]
     Active Substance: BUPROPION
  11. PEPCID [Concomitant]
     Active Substance: FAMOTIDINE

REACTIONS (5)
  - Malaise [None]
  - Paraesthesia [None]
  - Stress cardiomyopathy [None]
  - Myocardial infarction [None]
  - Hypertension [None]

NARRATIVE: CASE EVENT DATE: 20200517
